FAERS Safety Report 25623358 (Version 2)
Quarter: 2025Q3

REPORT INFORMATION
  Report Type: Report from Study
  Country: EU (occurrence: EU)
  Receive Date: 20250730
  Receipt Date: 20250821
  Transmission Date: 20251021
  Serious: Yes (Other)
  Sender: MYLAN
  Company Number: EU-BRISTOL-MYERS SQUIBB COMPANY-2025-096034

PATIENT
  Age: 63 Year
  Sex: Male

DRUGS (1)
  1. LENALIDOMIDE [Suspect]
     Active Substance: LENALIDOMIDE
     Indication: Plasma cell myeloma

REACTIONS (3)
  - Neutropenia [Not Recovered/Not Resolved]
  - Peyronie^s disease [Not Recovered/Not Resolved]
  - Nausea [Not Recovered/Not Resolved]

NARRATIVE: CASE EVENT DATE: 20250513
